FAERS Safety Report 4520053-X (Version None)
Quarter: 2004Q4

REPORT INFORMATION
  Report Type: 
  Country: None (occurrence: None)
  Receive Date: 20041202
  Receipt Date: 20041202
  Transmission Date: 20050328
  Serious: Yes (Hospitalization)
  Sender: FDA-Public Use
  Company Number: None

PATIENT
  Age: 3 Year
  Sex: Male
  Weight: 19.3 kg

DRUGS (5)
  1. DEXAMETHASONE [Suspect]
     Indication: ACUTE LYMPHOCYTIC LEUKAEMIA
     Dosage: 2.2 MG BID PO
     Route: 048
     Dates: start: 20040723, end: 20040802
  2. VINCRISTINE [Concomitant]
  3. ARA-C [Concomitant]
  4. METHOTREXATE [Concomitant]
  5. PEGASPARGINASE [Concomitant]

REACTIONS (4)
  - ABDOMINAL DISTENSION [None]
  - ABDOMINAL PAIN [None]
  - DRUG TOXICITY [None]
  - PNEUMATOSIS CYSTOIDES INTESTINALIS [None]
